FAERS Safety Report 13557762 (Version 1)
Quarter: 2017Q2

REPORT INFORMATION
  Report Type: Report from Study
  Country: US (occurrence: US)
  Receive Date: 20170518
  Receipt Date: 20170518
  Transmission Date: 20170830
  Serious: Yes (Hospitalization, Other)
  Sender: FDA-Public Use
  Company Number: US-AMGEN-USASL2017073248

PATIENT
  Age: 75 Year
  Sex: Male

DRUGS (1)
  1. REPATHA [Suspect]
     Active Substance: EVOLOCUMAB
     Indication: LOW DENSITY LIPOPROTEIN INCREASED
     Dosage: 140 MG/ML, Q2WK
     Route: 065
     Dates: start: 20170427

REACTIONS (3)
  - Ill-defined disorder [Not Recovered/Not Resolved]
  - Dizziness [Unknown]
  - Urinary retention [Unknown]

NARRATIVE: CASE EVENT DATE: 20170429
